FAERS Safety Report 9392626 (Version 4)
Quarter: 2018Q1

REPORT INFORMATION
  Report Type: Spontaneous
  Country: US (occurrence: US)
  Receive Date: 20130710
  Receipt Date: 20180117
  Transmission Date: 20180509
  Serious: Yes (Hospitalization, Other)
  Sender: FDA-Public Use
  Company Number: US-BAYER-2013-081906

PATIENT
  Age: 31 Year
  Sex: Female
  Weight: 81.63 kg

DRUGS (4)
  1. MOTRIN [Concomitant]
     Active Substance: IBUPROFEN
  2. METRONIDAZOLE. [Concomitant]
     Active Substance: METRONIDAZOLE
     Dosage: 500 MG, BID FOR 7 DAYS
     Dates: start: 20090724
  3. MIRENA [Suspect]
     Active Substance: LEVONORGESTREL
     Indication: CONTRACEPTION
     Dosage: 20 MCG/24HR, CONT
     Route: 015
     Dates: start: 20080922, end: 20091208
  4. MIRENA [Suspect]
     Active Substance: LEVONORGESTREL
     Indication: CONTRACEPTION
     Dosage: UNK
     Dates: start: 20080922, end: 20091208

REACTIONS (11)
  - Abortion spontaneous [None]
  - Anxiety [None]
  - Injury [None]
  - Emotional distress [None]
  - Pregnancy with contraceptive device [None]
  - Pelvic pain [None]
  - Abdominal pain [None]
  - Device issue [None]
  - Drug ineffective [None]
  - Depression [None]
  - Uterine perforation [None]

NARRATIVE: CASE EVENT DATE: 2009
